FAERS Safety Report 5537404-X (Version None)
Quarter: 2007Q4

REPORT INFORMATION
  Report Type: 
  Country: None (occurrence: None)
  Receive Date: 20071207
  Receipt Date: 20071128
  Transmission Date: 20080405
  Serious: Yes (Hospitalization)
  Sender: FDA-Public Use
  Company Number: B0497475A

PATIENT
  Age: 75 Year
  Sex: Female

DRUGS (5)
  1. ZYLORIC [Suspect]
     Dosage: 300MG PER DAY
     Route: 048
  2. SERETIDE [Suspect]
     Dosage: 1UNIT TWICE PER DAY
     Route: 055
  3. CO-APROVEL [Suspect]
     Route: 048
  4. EUPRESSYL [Suspect]
     Dosage: 60MG PER DAY
     Route: 048
  5. KARDEGIC [Suspect]
     Dosage: 75MG PER DAY
     Route: 048

REACTIONS (7)
  - HYPOAESTHESIA [None]
  - PAIN IN EXTREMITY [None]
  - PALLANAESTHESIA [None]
  - PARAESTHESIA [None]
  - POLYNEUROPATHY IDIOPATHIC PROGRESSIVE [None]
  - RED BLOOD CELL SEDIMENTATION RATE INCREASED [None]
  - SENSORY DISTURBANCE [None]
